FAERS Safety Report 4957615-1 (Version None)
Quarter: 2006Q1

REPORT INFORMATION
  Report Type: 
  Country: None (occurrence: None)
  Receive Date: 20060324
  Receipt Date: 20060313
  Transmission Date: 20060701
  Serious: Yes (Hospitalization)
  Sender: FDA-Public Use
  Company Number: MEDI-0004258

PATIENT
  Age: 58 Year
  Sex: Male

DRUGS (2)
  1. ETHYOL [Suspect]
     Indication: CHEMOTHERAPY
     Dosage: SUBCUTANEOUS
     Route: 058
  2. CISPLATIN [Concomitant]

REACTIONS (4)
  - HYPOTENSION [None]
  - NEUTROPENIA [None]
  - RASH GENERALISED [None]
  - SEPSIS [None]
